FAERS Safety Report 5869465-2 (Version None)
Quarter: 2008Q3

REPORT INFORMATION
  Report Type: 
  Country: None (occurrence: None)
  Receive Date: 20080828
  Receipt Date: 20080821
  Transmission Date: 20090109
  Serious: Yes (Hospitalization)
  Sender: FDA-Public Use
  Company Number: SPV1-2008-01769

PATIENT
  Age: 19 Year
  Sex: Male

DRUGS (4)
  1. ELAPRASE(IDURSULFASE) CONCENTRATE FOR SOLUTION INFUSION [Suspect]
     Indication: MUCOPOLYSACCHARIDOSIS II
     Dosage: 0.5 MG/KG, 1X/WEEK, IV DRIP
     Route: 041
     Dates: start: 20060927
  2. FLUOXETINE [Concomitant]
  3. D-FLUORETTEN /00364201/(CHOLESTEROL, COLECALCIFEROL, SODIUM FLUORIDE) [Concomitant]
  4. SODIUM CHLORIDE 0.9% [Concomitant]

REACTIONS (3)
  - KYPHOSCOLIOSIS [None]
  - QUADRIPARESIS [None]
  - SPINAL CORD OEDEMA [None]
